FAERS Safety Report 7580438-4 (Version None)
Quarter: 2011Q2

REPORT INFORMATION
  Report Type: 
  Country: None (occurrence: None)
  Receive Date: 20110629
  Receipt Date: 20110609
  Transmission Date: 20111010
  Serious: Yes (Hospitalization)
  Sender: FDA-Public Use
  Company Number: A0807061A

PATIENT
  Age: 46 Year
  Sex: Male
  Weight: 125.5 kg

DRUGS (2)
  1. GLUCOTROL XL [Concomitant]
  2. AVANDIA [Suspect]
     Indication: DIABETES MELLITUS
     Dosage: 4MG TWICE PER DAY
     Route: 048

REACTIONS (5)
  - MYOCARDIAL INFARCTION [None]
  - ARTERIAL OCCLUSIVE DISEASE [None]
  - CEREBROVASCULAR ACCIDENT [None]
  - PULMONARY HYPERTENSION [None]
  - CARDIAC FAILURE CONGESTIVE [None]
